FAERS Safety Report 7811761-3 (Version None)
Quarter: 2011Q4

REPORT INFORMATION
  Report Type: 
  Country: None (occurrence: None)
  Receive Date: 20111013
  Receipt Date: 20110929
  Transmission Date: 20120403
  Serious: Yes (Life-Threatening, Hospitalization, Other)
  Sender: FDA-Public Use
  Company Number: US-ELI_LILLY_AND_COMPANY-US201109001309

PATIENT
  Sex: Male

DRUGS (20)
  1. PRADAXA [Concomitant]
  2. MUCINEX [Concomitant]
  3. LESCOL XL [Concomitant]
  4. CARTIA XT [Concomitant]
  5. HYDROCODONE BITARTRATE [Concomitant]
  6. TRAMADOL HCL [Concomitant]
  7. FORTEO [Suspect]
     Indication: OSTEOPOROSIS
     Dosage: 20 UG, QD
  8. DUTASTERIDE [Concomitant]
  9. POTASSIUM CHLORIDE [Concomitant]
  10. ZITHROMAX [Concomitant]
  11. BUTRANS [Concomitant]
  12. FUROSEMIDE [Concomitant]
  13. TAMSULOSIN HYDROCHLORIDE [Concomitant]
  14. ASPIRIN [Concomitant]
  15. DOXICYCLINE                        /00055701/ [Concomitant]
  16. PREDNISONE [Concomitant]
  17. MEGESTROL ACETATE [Concomitant]
  18. FORTEO [Suspect]
     Dosage: 20 UG, QD
  19. BROMAX                             /00546002/ [Concomitant]
  20. ALBUTEROL SULFATE AND IPRATROPIUM BROMIDE [Concomitant]

REACTIONS (14)
  - DIARRHOEA [None]
  - HAEMATOCHEZIA [None]
  - PNEUMONIA [None]
  - STAPHYLOCOCCAL INFECTION [None]
  - DYSPNOEA EXERTIONAL [None]
  - PAINFUL RESPIRATION [None]
  - GASTROINTESTINAL TUBE INSERTION [None]
  - BACK DISORDER [None]
  - PLEURAL EFFUSION [None]
  - GASTROINTESTINAL HAEMORRHAGE [None]
  - DYSPNOEA [None]
  - WEIGHT DECREASED [None]
  - WHITE BLOOD CELL COUNT DECREASED [None]
  - TRACHEOSTOMY [None]
